FAERS Safety Report 7349438-3 (Version None)
Quarter: 2011Q1

REPORT INFORMATION
  Report Type: 
  Country: None (occurrence: None)
  Receive Date: 20110314
  Receipt Date: 20100819
  Transmission Date: 20110831
  Serious: No
  Sender: FDA-Public Use
  Company Number: US-ABBOTT-10P-163-0666504-00

PATIENT
  Sex: Male

DRUGS (2)
  1. DEPAKOTE [Suspect]
     Indication: HEADACHE
  2. DEPAKOTE [Suspect]

REACTIONS (1)
  - OPIATES POSITIVE [None]
